FAERS Safety Report 17404814 (Version 1)
Quarter: 2020Q1

REPORT INFORMATION
  Report Type: Report from Study
  Country: None (occurrence: FR)
  Receive Date: 20200211
  Receipt Date: 20200211
  Transmission Date: 20200409
  Serious: Yes (Congenital Anomaly, Other)
  Sender: FDA-Public Use
  Company Number: FR-ABBVIE-20K-056-3266985-00

PATIENT
  Sex: Female
  Weight: 2.2 kg

DRUGS (6)
  1. NORVIR [Suspect]
     Active Substance: RITONAVIR
     Indication: MATERNAL EXPOSURE TIMING UNSPECIFIED
     Route: 064
  2. VIRAMUNE [Concomitant]
     Active Substance: NEVIRAPINE
     Indication: MATERNAL EXPOSURE TIMING UNSPECIFIED
     Route: 064
  3. EPZICOM [Suspect]
     Active Substance: ABACAVIR SULFATE\LAMIVUDINE
     Indication: MATERNAL EXPOSURE TIMING UNSPECIFIED
     Route: 064
  4. PREZISTA [Suspect]
     Active Substance: DARUNAVIR ETHANOLATE
     Indication: MATERNAL EXPOSURE TIMING UNSPECIFIED
     Route: 064
  5. REYATAZ [Suspect]
     Active Substance: ATAZANAVIR SULFATE
     Indication: MATERNAL EXPOSURE TIMING UNSPECIFIED
     Route: 064
  6. ABACAVIR SULFATE + LAMIVUDINE [Suspect]
     Active Substance: ABACAVIR SULFATE\LAMIVUDINE
     Indication: MATERNAL EXPOSURE TIMING UNSPECIFIED
     Route: 064

REACTIONS (12)
  - Low set ears [Unknown]
  - Acoustic stimulation tests abnormal [Unknown]
  - Breast disorder [Unknown]
  - Foetal growth restriction [Recovering/Resolving]
  - Foetal exposure during pregnancy [Unknown]
  - Low birth weight baby [Unknown]
  - Supernumerary nipple [Unknown]
  - Left ventricular dilatation [Unknown]
  - Dermatitis exfoliative generalised [Not Recovered/Not Resolved]
  - Eosinophilia [Unknown]
  - Erythema [Unknown]
  - Congenital naevus [Unknown]

NARRATIVE: CASE EVENT DATE: 20170129
